FAERS Safety Report 22819573 (Version 13)
Quarter: 2024Q1

REPORT INFORMATION
  Report Type: Report from Study
  Country: AR (occurrence: AR)
  Receive Date: 20230814
  Receipt Date: 20240329
  Transmission Date: 20240410
  Serious: Yes (Hospitalization, Other)
  Sender: FDA-Public Use
  Company Number: AR-002147023-NVSC2023AR176285

PATIENT
  Sex: Male

DRUGS (6)
  1. TAFINLAR [Suspect]
     Active Substance: DABRAFENIB MESYLATE
     Indication: Malignant melanoma
     Dosage: 300 MG, QD
     Route: 048
     Dates: start: 20230211
  2. TAFINLAR [Suspect]
     Active Substance: DABRAFENIB MESYLATE
     Dosage: 300 MG, QD
     Route: 048
     Dates: start: 20230411
  3. TAFINLAR [Suspect]
     Active Substance: DABRAFENIB MESYLATE
     Dosage: 300 MG, QD
     Route: 048
     Dates: start: 202304
  4. TAFINLAR [Suspect]
     Active Substance: DABRAFENIB MESYLATE
     Dosage: 300 MG, QD
     Route: 048
     Dates: start: 20230311
  5. MEKINIST [Suspect]
     Active Substance: TRAMETINIB DIMETHYL SULFOXIDE
     Indication: Malignant melanoma
     Dosage: 2 MG, QD
     Route: 048
     Dates: start: 20230411
  6. MEKINIST [Suspect]
     Active Substance: TRAMETINIB DIMETHYL SULFOXIDE
     Dosage: 2 MG, QD
     Route: 048
     Dates: start: 20230415, end: 2023

REACTIONS (28)
  - Ulcer [Unknown]
  - Illness [Unknown]
  - Condition aggravated [Unknown]
  - Anaemia [Unknown]
  - Haemoglobin decreased [Unknown]
  - Malaise [Unknown]
  - Seizure [Unknown]
  - Malignant melanoma [Unknown]
  - Malignant neoplasm progression [Unknown]
  - Abdominal discomfort [Unknown]
  - Hyperglycaemia [Unknown]
  - Decreased immune responsiveness [Unknown]
  - Blood glucose decreased [Unknown]
  - Nasopharyngitis [Unknown]
  - Movement disorder [Unknown]
  - Gait disturbance [Unknown]
  - General physical health deterioration [Unknown]
  - Pain in extremity [Unknown]
  - Fatigue [Unknown]
  - Neoplasm [Unknown]
  - Abdominal discomfort [Unknown]
  - Vomiting [Unknown]
  - Diarrhoea [Unknown]
  - Decreased appetite [Unknown]
  - Pyrexia [Unknown]
  - Product availability issue [Unknown]
  - Inappropriate schedule of product administration [Unknown]
  - Drug ineffective [Unknown]

NARRATIVE: CASE EVENT DATE: 20230101
